FAERS Safety Report 6596092-4 (Version None)
Quarter: 2010Q1

REPORT INFORMATION
  Report Type: 
  Country: None (occurrence: None)
  Receive Date: 20100223
  Receipt Date: 20100222
  Transmission Date: 20100710
  Serious: Yes (Life-Threatening, Other)
  Sender: FDA-Public Use
  Company Number: US-ROXANE LABORATORIES, INC.-2010-DE-00693GD

PATIENT
  Age: 39 Year
  Sex: Female

DRUGS (3)
  1. SERTRALINE HCL [Suspect]
     Dosage: 100 MG
  2. FENTANYL-100 [Suspect]
     Indication: SEDATIVE THERAPY
     Dosage: 50 MCG
  3. MIDAZOLAM HCL [Concomitant]
     Indication: SEDATIVE THERAPY
     Dosage: 2 MG

REACTIONS (4)
  - DRUG INTERACTION [None]
  - PYREXIA [None]
  - RHABDOMYOLYSIS [None]
  - SEROTONIN SYNDROME [None]
